FAERS Safety Report 6637570-9 (Version None)
Quarter: 2010Q1

REPORT INFORMATION
  Report Type: 
  Country: None (occurrence: None)
  Receive Date: 20100317
  Receipt Date: 20100312
  Transmission Date: 20100710
  Serious: Yes (Hospitalization)
  Sender: FDA-Public Use
  Company Number: GB-JNJFOC-20100104953

PATIENT
  Age: 65 Year
  Sex: Female
  Weight: 75 kg

DRUGS (3)
  1. STELARA [Suspect]
     Indication: PSORIASIS
     Route: 058
     Dates: end: 20100213
  2. STELARA [Suspect]
     Route: 058
     Dates: end: 20100213
  3. FUROSEMIDE [Concomitant]
     Route: 065

REACTIONS (3)
  - PRURITUS [None]
  - PSORIASIS [None]
  - PUSTULAR PSORIASIS [None]
